FAERS Safety Report 8601829-6 (Version None)
Quarter: 2012Q3

REPORT INFORMATION
  Report Type: 
  Country: None (occurrence: None)
  Receive Date: 20120817
  Receipt Date: 20120508
  Transmission Date: 20120928
  Serious: No
  Sender: FDA-Public Use
  Company Number: US-BRISTOL-MYERS SQUIBB COMPANY-16551863

PATIENT
  Age: 76 Year
  Sex: Female

DRUGS (1)
  1. SPRYCEL [Suspect]

REACTIONS (7)
  - DECREASED APPETITE [None]
  - ASTHENIA [None]
  - DIARRHOEA [None]
  - HYPERHIDROSIS [None]
  - DYSGEUSIA [None]
  - ABDOMINAL PAIN UPPER [None]
  - OEDEMA PERIPHERAL [None]
